FAERS Safety Report 22072478 (Version 1)
Quarter: 2023Q1

REPORT INFORMATION
  Report Type: Spontaneous
  Country: US (occurrence: US)
  Receive Date: 20230308
  Receipt Date: 20230308
  Transmission Date: 20230418
  Serious: No
  Sender: FDA-Public Use
  Company Number: US-ALKERMES INC.-ALK-2023-001012

PATIENT
  Age: 44 Year
  Sex: Male

DRUGS (1)
  1. VIVITROL [Suspect]
     Active Substance: NALTREXONE
     Indication: Drug dependence
     Dosage: 380 MILLIGRAM, QMO
     Route: 030
     Dates: start: 20230221

REACTIONS (4)
  - Adverse drug reaction [Unknown]
  - Road traffic accident [Unknown]
  - Malaise [Unknown]
  - Drug dependence [Unknown]

NARRATIVE: CASE EVENT DATE: 20230201
